FAERS Safety Report 7386658-6 (Version None)
Quarter: 2011Q1

REPORT INFORMATION
  Report Type: 
  Country: None (occurrence: None)
  Receive Date: 20110331
  Receipt Date: 20110322
  Transmission Date: 20110831
  Serious: Yes (Hospitalization)
  Sender: FDA-Public Use
  Company Number: JP-ASTRAZENECA-2011SE11286

PATIENT
  Age: 30096 Day
  Sex: Male
  Weight: 65 kg

DRUGS (4)
  1. OLMETEC [Concomitant]
     Indication: HYPERTENSION
     Route: 048
     Dates: start: 20110218
  2. URIEF [Concomitant]
     Indication: BENIGN PROSTATIC HYPERPLASIA
     Route: 048
  3. BEZATOL SR [Concomitant]
     Indication: HYPERLIPIDAEMIA
     Route: 048
  4. IRESSA [Suspect]
     Indication: LUNG ADENOCARCINOMA RECURRENT
     Route: 048
     Dates: start: 20110221, end: 20110224

REACTIONS (1)
  - LUNG DISORDER [None]
